FAERS Safety Report 5912508-8 (Version None)
Quarter: 2008Q4

REPORT INFORMATION
  Report Type: 
  Country: None (occurrence: None)
  Receive Date: 20081008
  Receipt Date: 20081001
  Transmission Date: 20090506
  Serious: Yes (Death, Hospitalization)
  Sender: FDA-Public Use
  Company Number: US-BAXTER-2008BH009862

PATIENT
  Age: 84 Year
  Sex: Female
  Weight: 68 kg

DRUGS (10)
  1. HEPARIN SODIUM INJECTION [Suspect]
     Indication: CORONARY ARTERY BYPASS
     Route: 065
     Dates: start: 20070901, end: 20070901
  2. HEPARIN SODIUM INJECTION [Suspect]
     Indication: INTRAVENOUS CATHETER MANAGEMENT
     Route: 065
     Dates: start: 20070901, end: 20070901
  3. HEPARIN SODIUM INJECTION [Suspect]
     Indication: THROMBOSIS PROPHYLAXIS
     Route: 065
     Dates: start: 20070901, end: 20070901
  4. HEPARIN SODIUM INJECTION [Suspect]
     Route: 065
     Dates: start: 20070901, end: 20071221
  5. HEPARIN SODIUM INJECTION [Suspect]
     Route: 065
     Dates: start: 20070901, end: 20071221
  6. HEPARIN SODIUM INJECTION [Suspect]
     Route: 065
     Dates: start: 20070901, end: 20071221
  7. HEPARIN SODIUM INJECTION [Suspect]
     Route: 010
     Dates: start: 20070901, end: 20071221
  8. HEPARIN SODIUM INJECTION [Suspect]
     Route: 010
     Dates: start: 20070901, end: 20071221
  9. HEPARIN SODIUM INJECTION [Suspect]
     Route: 010
     Dates: start: 20070901, end: 20071221
  10. COUMADIN [Suspect]
     Indication: DRUG USE FOR UNKNOWN INDICATION
     Route: 065

REACTIONS (6)
  - CONFUSIONAL STATE [None]
  - CORONARY ARTERY DISEASE [None]
  - DECUBITUS ULCER [None]
  - INFECTION [None]
  - PYREXIA [None]
  - RENAL FAILURE [None]
